FAERS Safety Report 16384197 (Version 1)
Quarter: 2019Q3

REPORT INFORMATION
  Report Type: Spontaneous
  Country: US (occurrence: US)
  Receive Date: 20190531
  Receipt Date: 20190531
  Transmission Date: 20191004
  Serious: Yes (Other)
  Sender: FDA-Public Use
  Company Number: None

PATIENT
  Age: 73 Year
  Sex: Female
  Weight: 63 kg

DRUGS (6)
  1. BLOOD PRESSURE [Concomitant]
  2. CLARITIN [Concomitant]
     Active Substance: LORATADINE
  3. IMVEXXY [Suspect]
     Active Substance: ESTRADIOL
     Indication: PROPHYLAXIS URINARY TRACT INFECTION
     Dosage: ?          OTHER STRENGTH:4 MCG;QUANTITY:1 SUPPOSITORY(IES);OTHER FREQUENCY:TWICE WEEKLY;?
     Route: 067
     Dates: start: 20190319, end: 20190523
  4. CHOLESTEROL [Concomitant]
     Active Substance: CHOLESTEROL
  5. FLONASE [Concomitant]
     Active Substance: FLUTICASONE PROPIONATE
  6. THYROID [Concomitant]
     Active Substance: LEVOTHYROXINE\LIOTHYRONINE

REACTIONS (5)
  - Insomnia [None]
  - Fatigue [None]
  - Sinus disorder [None]
  - Back pain [None]
  - Hypersensitivity [None]

NARRATIVE: CASE EVENT DATE: 20190319
